FAERS Safety Report 8512053-X (Version None)
Quarter: 2012Q3

REPORT INFORMATION
  Report Type: 
  Country: None (occurrence: None)
  Receive Date: 20120716
  Receipt Date: 20120705
  Transmission Date: 20120928
  Serious: Yes (Other)
  Sender: FDA-Public Use
  Company Number: JP-VERTEX PHARMACEUTICALS INC.-AE-2012-009729

PATIENT
  Age: 51 Year
  Sex: Male

DRUGS (5)
  1. TELAVIC (TELAPREVIR) [Suspect]
     Indication: HEPATITIS C
     Route: 048
     Dates: start: 20120523
  2. PEG-INTRON [Concomitant]
     Route: 058
     Dates: start: 20120704
  3. REBETOL [Concomitant]
     Route: 048
     Dates: start: 20120627
  4. PEG-INTRON [Concomitant]
     Indication: HEPATITIS C
     Route: 058
     Dates: start: 20120523, end: 20120627
  5. REBETOL [Concomitant]
     Indication: HEPATITIS C
     Route: 048
     Dates: start: 20120523, end: 20120626

REACTIONS (3)
  - RENAL IMPAIRMENT [None]
  - BLOOD CREATININE INCREASED [None]
  - BLOOD URIC ACID INCREASED [None]
